FAERS Safety Report 7327013-4 (Version None)
Quarter: 2011Q1

REPORT INFORMATION
  Report Type: 
  Country: None (occurrence: None)
  Receive Date: 20110302
  Receipt Date: 20110223
  Transmission Date: 20110831
  Serious: Yes (Hospitalization, Other)
  Sender: FDA-Public Use
  Company Number: AT-AMGEN-AUTSP2010003143

PATIENT
  Age: 59 Year
  Sex: Male
  Weight: 98 kg

DRUGS (11)
  1. PASPERTIN                          /00041902/ [Concomitant]
  2. NPLATE [Suspect]
     Indication: IDIOPATHIC THROMBOCYTOPENIC PURPURA
     Dosage: 100 A?G, QWK
     Dates: start: 20090302, end: 20100708
  3. NPLATE [Suspect]
     Dosage: 500 A?G, QWK
     Dates: start: 20101108
  4. PANTOPRAZOLE [Concomitant]
  5. NPLATE [Suspect]
     Dosage: 400 A?G, QWK
     Dates: start: 20100913, end: 20101023
  6. BRICANYL [Concomitant]
     Indication: ASTHMA
  7. ASPIRIN [Concomitant]
  8. TRAMAL                             /00599201/ [Concomitant]
  9. NPLATE [Suspect]
     Dosage: 300 A?G, QWK
     Dates: start: 20100816, end: 20100830
  10. METOPROLOL TARTRATE [Concomitant]
  11. NPLATE [Suspect]
     Dosage: 200 A?G, QWK
     Dates: start: 20100715, end: 20100805

REACTIONS (3)
  - NON-NEUTRALISING ANTIBODIES POSITIVE [None]
  - THERAPEUTIC RESPONSE DECREASED [None]
  - EPISTAXIS [None]
